FAERS Safety Report 25062725 (Version 2)
Quarter: 2025Q2

REPORT INFORMATION
  Report Type: Report from Study
  Country: JP (occurrence: JP)
  Receive Date: 20250311
  Receipt Date: 20250408
  Transmission Date: 20250717
  Serious: Yes (Hospitalization, Other)
  Sender: GENMAB
  Company Number: JP-GENMAB-2024-00190AA

PATIENT
  Age: 76 Year
  Sex: Female
  Weight: 32.5 kg

DRUGS (18)
  1. EPKINLY [Suspect]
     Active Substance: EPCORITAMAB-BYSP
     Indication: Diffuse large B-cell lymphoma refractory
     Route: 058
     Dates: start: 20231228, end: 20231228
  2. EPKINLY [Suspect]
     Active Substance: EPCORITAMAB-BYSP
     Route: 058
     Dates: start: 20240104, end: 20240104
  3. EPKINLY [Suspect]
     Active Substance: EPCORITAMAB-BYSP
     Route: 058
     Dates: start: 20240112
  4. PREDNISOLONE [Concomitant]
     Active Substance: PREDNISOLONE
     Indication: Prophylaxis
     Dosage: 100 MILLIGRAM, EVERY DAY
     Route: 048
     Dates: start: 20231228, end: 20231231
  5. PREDNISOLONE [Concomitant]
     Active Substance: PREDNISOLONE
     Dosage: 100 MILLIGRAM, EVERY DAY
     Route: 048
     Dates: start: 20240104, end: 20240106
  6. PREDNISOLONE [Concomitant]
     Active Substance: PREDNISOLONE
     Dosage: 100 MILLIGRAM, EVERY DAY
     Route: 048
     Dates: start: 20240112, end: 20240114
  7. PREDNISOLONE [Concomitant]
     Active Substance: PREDNISOLONE
     Dates: start: 202401, end: 202401
  8. OLOPATADINE [Concomitant]
     Active Substance: OLOPATADINE
     Indication: Prophylaxis
     Route: 048
     Dates: start: 20231228, end: 20231228
  9. OLOPATADINE [Concomitant]
     Active Substance: OLOPATADINE
     Route: 048
     Dates: start: 20240104, end: 20240104
  10. OLOPATADINE [Concomitant]
     Active Substance: OLOPATADINE
     Route: 048
     Dates: start: 20240112, end: 20240112
  11. OLOPATADINE [Concomitant]
     Active Substance: OLOPATADINE
     Dates: start: 202401, end: 202401
  12. ACETAMINOPHEN [Concomitant]
     Active Substance: ACETAMINOPHEN
     Indication: Prophylaxis
     Route: 048
     Dates: start: 20231228, end: 20231228
  13. ACETAMINOPHEN [Concomitant]
     Active Substance: ACETAMINOPHEN
     Route: 048
     Dates: start: 20240104, end: 20240104
  14. ACETAMINOPHEN [Concomitant]
     Active Substance: ACETAMINOPHEN
     Route: 048
     Dates: start: 20240112, end: 20240112
  15. ACETAMINOPHEN [Concomitant]
     Active Substance: ACETAMINOPHEN
     Dates: start: 202401, end: 202401
  16. ISOTONIC SODIUM CHLORIDE SOLUTION [Concomitant]
     Active Substance: SODIUM CHLORIDE
     Indication: Prophylaxis
     Dosage: 1000 MILLILITER, BID
     Dates: start: 20231228, end: 20231228
  17. ISOTONIC SODIUM CHLORIDE SOLUTION [Concomitant]
     Active Substance: SODIUM CHLORIDE
     Dosage: 1000 MILLILITER, BID
     Dates: start: 20240104, end: 20240104
  18. ISOTONIC SODIUM CHLORIDE SOLUTION [Concomitant]
     Active Substance: SODIUM CHLORIDE
     Dosage: 1000 MILLILITER, BID
     Dates: start: 20240112, end: 20240112

REACTIONS (6)
  - Pyelonephritis [Recovering/Resolving]
  - Cytokine release syndrome [Recovered/Resolved]
  - Fatigue [Recovered/Resolved]
  - Fatigue [Recovered/Resolved]
  - Headache [Recovered/Resolved]
  - Pyrexia [Recovering/Resolving]

NARRATIVE: CASE EVENT DATE: 20231228
